FAERS Safety Report 5678125-2 (Version None)
Quarter: 2008Q1

REPORT INFORMATION
  Report Type: 
  Country: None (occurrence: None)
  Receive Date: 20080319
  Receipt Date: 20080307
  Transmission Date: 20080703
  Serious: Yes (Death, Other)
  Sender: FDA-Public Use
  Company Number: 2007-02442

PATIENT
  Age: 76 Year
  Sex: Female
  Weight: 54 kg

DRUGS (25)
  1. VELCADE [Suspect]
     Indication: MULTIPLE MYELOMA
     Dosage: 1.90 MG, INTRAVENOUS; 1.50 MG, INTRAVENOUS
     Route: 042
     Dates: start: 20070425, end: 20070515
  2. VELCADE [Suspect]
     Indication: MULTIPLE MYELOMA
     Dosage: 1.90 MG, INTRAVENOUS; 1.50 MG, INTRAVENOUS
     Route: 042
     Dates: start: 20070524, end: 20070807
  3. DEXAMETHASONE TAB [Suspect]
     Indication: MULTIPLE MYELOMA
     Dosage: 20.00 MG, INTRAENOUS
     Route: 042
     Dates: start: 20070425, end: 20070808
  4. DEXAMETHASONE SODIUM PHOSPHATE [Suspect]
     Dosage: 20.00 MG
     Dates: start: 20070522, end: 20070808
  5. LASIX [Concomitant]
  6. PIPERACILLIN SODIUM AND TAZOBACTAM SODIUM [Concomitant]
  7. NORVASC [Concomitant]
  8. MUCOSTA (REBAMIPIDE) [Concomitant]
  9. LANSOPRAZOLE [Concomitant]
  10. RIZE (CLOTIAZEPAM) [Concomitant]
  11. LENDORM [Concomitant]
  12. BEZATOL - SLOW RELEASE (BEZAFIBRATE) [Concomitant]
  13. OPALMON (LIMAPROST) [Concomitant]
  14. DOGMATYL (SULPIRIDE) [Concomitant]
  15. PURSENNID (SENNA LEAF) [Concomitant]
  16. OXYCONTIN [Concomitant]
  17. MORPHINE [Concomitant]
  18. RISPERDAL [Concomitant]
  19. HEP-FLUSH (HEPARIN SODIUM) [Concomitant]
  20. PRIMPERAN (METCOCLOPRAMIDE) [Concomitant]
  21. VITAMINS NOS (VITAMINS NOS) [Concomitant]
  22. NEUROTROPIN (OGAN LYSATE, STANDARDIZED) [Concomitant]
  23. METHYCOBAL (MECOLBALAMIN) [Concomitant]
  24. POTASSIUM CHLORIDE [Concomitant]
  25. RED BLOOD CELLS [Concomitant]

REACTIONS (9)
  - ANAEMIA [None]
  - BEDRIDDEN [None]
  - CATHETER RELATED COMPLICATION [None]
  - DEEP VEIN THROMBOSIS [None]
  - DISEASE PROGRESSION [None]
  - NEUROPATHY PERIPHERAL [None]
  - OEDEMA PERIPHERAL [None]
  - PULMONARY EMBOLISM [None]
  - TUMOUR LYSIS SYNDROME [None]
